FAERS Safety Report 6921735-2 (Version None)
Quarter: 2010Q3

REPORT INFORMATION
  Report Type: 
  Country: None (occurrence: None)
  Receive Date: 20100812
  Receipt Date: 20100803
  Transmission Date: 20110219
  Serious: Yes (Hospitalization)
  Sender: FDA-Public Use
  Company Number: US-CELGENEUS-163-21880-10060771

PATIENT
  Sex: Male

DRUGS (2)
  1. REVLIMID [Suspect]
     Indication: MULTIPLE MYELOMA
     Route: 048
     Dates: start: 20100722
  2. REVLIMID [Suspect]
     Route: 048
     Dates: start: 20100521

REACTIONS (2)
  - DEHYDRATION [None]
  - PATHOLOGICAL FRACTURE [None]
